FAERS Safety Report 10362141 (Version 1)
Quarter: 2014Q3

REPORT INFORMATION
  Report Type: Spontaneous
  Country: US (occurrence: US)
  Receive Date: 20140805
  Receipt Date: 20140805
  Transmission Date: 20150326
  Serious: No
  Sender: FDA-Public Use
  Company Number: US-BAYER-2014-110135

PATIENT
  Age: 70 Year
  Sex: Female
  Weight: 72 kg

DRUGS (3)
  1. CITRACAL PLUS BONE DENSITY BUILDER [Concomitant]
     Dosage: 2 DF, QD
  2. ONE A DAY WOMEN^S MENOPAUSE FORMULA [Suspect]
     Active Substance: MINERALS\VITAMINS
     Dosage: 1 DF, QD WITH FOOD
     Route: 048
  3. ALEVE [Suspect]
     Active Substance: NAPROXEN SODIUM
     Indication: MYALGIA
     Dosage: 2 DF, QD
     Route: 048
     Dates: start: 201406, end: 201407

REACTIONS (2)
  - Drug ineffective [None]
  - Incorrect drug administration duration [None]

NARRATIVE: CASE EVENT DATE: 201406
